FAERS Safety Report 4365918-7 (Version None)
Quarter: 2004Q2

REPORT INFORMATION
  Report Type: 
  Country: None (occurrence: None)
  Receive Date: 20040524
  Receipt Date: 20040312
  Transmission Date: 20050107
  Serious: No
  Sender: FDA-Public Use
  Company Number: SU-2004-002217

PATIENT
  Age: 37 Year
  Sex: Female
  Weight: 83.9154 kg

DRUGS (2)
  1. BENICAR [Suspect]
     Indication: HYPERTENSION
     Dosage: 20 MG QD PO
     Route: 048
     Dates: start: 20040312, end: 20040312
  2. LOTERAL [Concomitant]

REACTIONS (1)
  - HYPOAESTHESIA ORAL [None]
